FAERS Safety Report 9375240 (Version 1)
Quarter: 2013Q2

REPORT INFORMATION
  Report Type: Spontaneous
  Country: US (occurrence: US)
  Receive Date: 20130628
  Receipt Date: 20130628
  Transmission Date: 20140414
  Serious: Yes (Other)
  Sender: FDA-Public Use
  Company Number: US-MERCK-1306USA013705

PATIENT
  Sex: Female

DRUGS (1)
  1. JANUMET [Suspect]
     Dosage: UNK
     Route: 048
     Dates: start: 2010, end: 2011

REACTIONS (3)
  - Pancreatic carcinoma [Unknown]
  - Pancreatectomy [Unknown]
  - Pancreaticoduodenectomy [Unknown]
